FAERS Safety Report 23340118 (Version 1)
Quarter: 2023Q4

REPORT INFORMATION
  Report Type: Spontaneous
  Country: US (occurrence: US)
  Receive Date: 20231227
  Receipt Date: 20231227
  Transmission Date: 20240110
  Serious: Yes (Other)
  Sender: FDA-Public Use
  Company Number: US-GLAXOSMITHKLINE-US2023AMR179468

PATIENT

DRUGS (1)
  1. ZEJULA [Suspect]
     Active Substance: NIRAPARIB
     Indication: Product used for unknown indication
     Dosage: 200 MG, QD
     Route: 048
     Dates: start: 20231127

REACTIONS (7)
  - Intestinal obstruction [Unknown]
  - Abdominal pain upper [Unknown]
  - Nausea [Unknown]
  - Constipation [Unknown]
  - Dysgeusia [Unknown]
  - Decreased appetite [Unknown]
  - Abdominal pain [Unknown]
